FAERS Safety Report 20775801 (Version 1)
Quarter: 2022Q2

REPORT INFORMATION
  Report Type: Spontaneous
  Country: US (occurrence: US)
  Receive Date: 20220502
  Receipt Date: 20220502
  Transmission Date: 20220721
  Serious: No
  Sender: FDA-Public Use
  Company Number: US-PFIZER INC-202101015712

PATIENT
  Age: 55 Year
  Sex: Female
  Weight: 67.13 kg

DRUGS (4)
  1. LYRICA [Suspect]
     Active Substance: PREGABALIN
     Indication: Pain
     Dosage: UNK, DAILY (300MG PER DAY; 100MG SUPPOSED WHITE OVER RED CAPSULE, ALL ONE TIME)
  2. CHOLECALCIFEROL [Concomitant]
     Active Substance: CHOLECALCIFEROL
     Indication: Photosensitivity reaction
     Dosage: UNK
  3. JARDIANCE [Concomitant]
     Active Substance: EMPAGLIFLOZIN
     Indication: Diabetes mellitus
     Dosage: 10 MG, DAILY (10MG ONE TABLET EVERY DAY BY MOUTH)
     Route: 048
  4. ALBUTEROL [Concomitant]
     Active Substance: ALBUTEROL
     Indication: Asthma
     Dosage: 100 MG, DAILY (100MG MIST SPRAY INTO MOUTH IN LUNGS EVERYDAY)
     Route: 048

REACTIONS (6)
  - Intentional product use issue [Unknown]
  - Feeling abnormal [Unknown]
  - Illness [Unknown]
  - Nausea [Unknown]
  - Abdominal discomfort [Unknown]
  - Pain [Unknown]
